FAERS Safety Report 4820515-1 (Version None)
Quarter: 2005Q4

REPORT INFORMATION
  Report Type: 
  Country: None (occurrence: None)
  Receive Date: 20051104
  Receipt Date: 20051024
  Transmission Date: 20060501
  Serious: Yes (Hospitalization)
  Sender: FDA-Public Use
  Company Number: FR-GILEAD-2005-0008855

PATIENT
  Age: 47 Year
  Sex: Male

DRUGS (5)
  1. VIREAD [Suspect]
     Indication: HIV INFECTION
     Route: 048
     Dates: end: 20050912
  2. KALETRA [Concomitant]
     Indication: HIV INFECTION
  3. RETROVIR [Concomitant]
     Indication: HIV INFECTION
  4. RIMIFON [Concomitant]
     Indication: TUBERCULOSIS
     Dates: start: 20041220
  5. ANSATIPINE [Concomitant]
     Indication: TUBERCULOSIS
     Dates: start: 20041220

REACTIONS (4)
  - ANAEMIA [None]
  - FANCONI SYNDROME ACQUIRED [None]
  - GENERAL PHYSICAL HEALTH DETERIORATION [None]
  - HYPOCALCAEMIA [None]
